FAERS Safety Report 11012588 (Version 1)
Quarter: 2015Q2

REPORT INFORMATION
  Report Type: Spontaneous
  Country: US (occurrence: None)
  Receive Date: 20150410
  Receipt Date: 20150410
  Transmission Date: 20150821
  Serious: Yes (Disabling)
  Sender: FDA-Public Use
  Company Number: None

PATIENT
  Age: 67 Year
  Sex: Male
  Weight: 108.86 kg

DRUGS (4)
  1. CRESTOR [Suspect]
     Active Substance: ROSUVASTATIN CALCIUM
     Indication: BLOOD CHOLESTEROL INCREASED
     Dosage: 1 PILL TAKEN BY MOUTH
     Route: 048
     Dates: start: 20141211, end: 20150129
  2. ASPIRIN. [Concomitant]
     Active Substance: ASPIRIN
  3. LISINOPRIL. [Concomitant]
     Active Substance: LISINOPRIL
  4. BISOPROLOL [Concomitant]
     Active Substance: BISOPROLOL

REACTIONS (9)
  - Post herpetic neuralgia [None]
  - Myalgia [None]
  - Back pain [None]
  - Rash [None]
  - Herpes zoster [None]
  - Pain in extremity [None]
  - Walking aid user [None]
  - Herpes simplex [None]
  - Arthralgia [None]

NARRATIVE: CASE EVENT DATE: 20150129
